FAERS Safety Report 13918277 (Version 1)
Quarter: 2017Q3

REPORT INFORMATION
  Report Type: Spontaneous
  Country: US (occurrence: US)
  Receive Date: 20170829
  Receipt Date: 20170829
  Transmission Date: 20171127
  Serious: No
  Sender: FDA-Public Use
  Company Number: US-SA-2017SA092035

PATIENT
  Sex: Female

DRUGS (3)
  1. FABRAZYME [Suspect]
     Active Substance: AGALSIDASE BETA
     Indication: FABRY^S DISEASE
     Route: 041
  2. ASA [Concomitant]
     Active Substance: ASPIRIN
     Indication: PREMEDICATION
  3. BENADRYL [Concomitant]
     Active Substance: DIPHENHYDRAMINE HYDROCHLORIDE
     Indication: PREMEDICATION

REACTIONS (6)
  - Burning sensation [Unknown]
  - Abdominal pain upper [Unknown]
  - Temperature intolerance [Unknown]
  - Diarrhoea [Unknown]
  - Pain [Unknown]
  - Dizziness [Unknown]
